FAERS Safety Report 19708141 (Version 1)
Quarter: 2021Q3

REPORT INFORMATION
  Report Type: Spontaneous
  Country: CA (occurrence: CA)
  Receive Date: 20210817
  Receipt Date: 20210817
  Transmission Date: 20211014
  Serious: Yes (Life-Threatening, Hospitalization, Other)
  Sender: FDA-Public Use
  Company Number: CA-ACCORD-235277

PATIENT
  Age: 75 Year
  Sex: Female

DRUGS (13)
  1. JANUMET [Concomitant]
     Active Substance: METFORMIN HYDROCHLORIDE\SITAGLIPTIN PHOSPHATE
  2. GABAPENTIN. [Concomitant]
     Active Substance: GABAPENTIN
  3. CALCIUM CARBONATE/CALCIUM LACTOGLUCONATE [Concomitant]
     Active Substance: CALCIUM CARBONATE\CALCIUM LACTATE GLUCONATE
  4. FORXIGA [Suspect]
     Active Substance: DAPAGLIFLOZIN
     Indication: TYPE 2 DIABETES MELLITUS
     Dosage: 1 EVERY 1 DAYS
     Route: 048
  5. NOVOLIN NOS [Concomitant]
     Active Substance: INSULIN HUMAN
     Route: 030
  6. ERGOCALCIFEROL. [Concomitant]
     Active Substance: ERGOCALCIFEROL
  7. CEFTRIAXONE. [Concomitant]
     Active Substance: CEFTRIAXONE
     Route: 030
  8. URSODIOL. [Concomitant]
     Active Substance: URSODIOL
  9. NADOLOL. [Concomitant]
     Active Substance: NADOLOL
  10. IRON [Concomitant]
     Active Substance: IRON
  11. AMITRIPTYLINE [Concomitant]
     Active Substance: AMITRIPTYLINE
  12. ROSUVASTATIN. [Suspect]
     Active Substance: ROSUVASTATIN
     Indication: PRODUCT USED FOR UNKNOWN INDICATION
     Route: 048
  13. FUROSEMIDE. [Concomitant]
     Active Substance: FUROSEMIDE

REACTIONS (11)
  - Systemic candida [Unknown]
  - Blood creatinine increased [Unknown]
  - Candida test positive [Unknown]
  - Fungal infection [Unknown]
  - Cardiac arrest [Unknown]
  - Endocarditis [Unknown]
  - Hydronephrosis [Unknown]
  - Pyuria [Unknown]
  - Flank pain [Unknown]
  - Haematuria [Unknown]
  - Urinary tract infection fungal [Unknown]
